FAERS Safety Report 9274442 (Version 1)
Quarter: 2013Q2

REPORT INFORMATION
  Report Type: Spontaneous
  Country: US (occurrence: US)
  Receive Date: 20130506
  Receipt Date: 20130506
  Transmission Date: 20140414
  Serious: Yes (Other)
  Sender: FDA-Public Use
  Company Number: US-BRISTOL-MYERS SQUIBB COMPANY-18836866

PATIENT
  Sex: 0

DRUGS (1)
  1. BYETTA [Suspect]

REACTIONS (4)
  - Hepatitis [Unknown]
  - Visual impairment [Unknown]
  - Gastric disorder [Unknown]
  - Abdominal pain [Unknown]
